FAERS Safety Report 6023155-4 (Version None)
Quarter: 2008Q4

REPORT INFORMATION
  Report Type: 
  Country: None (occurrence: None)
  Receive Date: 20081230
  Receipt Date: 20081229
  Transmission Date: 20090506
  Serious: Yes (Hospitalization, Disabling)
  Sender: FDA-Public Use
  Company Number: B0439517A

PATIENT
  Age: 15 Year
  Sex: Female

DRUGS (14)
  1. FLOLAN [Suspect]
     Indication: PULMONARY HYPERTENSION
     Route: 042
     Dates: start: 20060201
  2. WARFARIN POTASSIUM [Concomitant]
     Indication: PULMONARY ARTERIAL HYPERTENSION
     Dosage: 1MG PER DAY
     Route: 048
     Dates: start: 20021026
  3. FUROSEMIDE [Concomitant]
     Indication: PULMONARY ARTERIAL HYPERTENSION
     Dosage: 60MG PER DAY
     Route: 048
     Dates: start: 20021010
  4. SPIRONOLACTONE [Concomitant]
     Indication: PULMONARY ARTERIAL HYPERTENSION
     Dosage: 75MG PER DAY
     Route: 048
     Dates: start: 20021010
  5. DIGOXIN [Concomitant]
     Indication: PULMONARY ARTERIAL HYPERTENSION
     Dosage: .25MG PER DAY
     Route: 048
     Dates: start: 20021015
  6. SALOBEL [Concomitant]
     Dosage: 50MG PER DAY
     Route: 048
     Dates: start: 20021012
  7. RENIVACE [Concomitant]
     Indication: PULMONARY ARTERIAL HYPERTENSION
     Dosage: 2.5MG PER DAY
     Route: 048
     Dates: start: 20021015
  8. VIAGRA [Concomitant]
     Route: 048
  9. MYSLEE [Concomitant]
     Route: 048
  10. GOODMIN [Concomitant]
     Indication: INSOMNIA
     Dosage: .25MG PER DAY
     Route: 048
     Dates: start: 20080507, end: 20080519
  11. TRACLEER [Concomitant]
     Indication: PULMONARY ARTERIAL HYPERTENSION
     Route: 048
     Dates: start: 20061221
  12. ASPARA K [Concomitant]
     Route: 048
     Dates: start: 20070313, end: 20070613
  13. INDERAL [Concomitant]
     Route: 048
  14. THYRADIN [Concomitant]
     Route: 048

REACTIONS (8)
  - ANAEMIA [None]
  - CARDIAC FAILURE [None]
  - OEDEMA [None]
  - PALLOR [None]
  - PALPITATIONS [None]
  - TACHYCARDIA [None]
  - THYROID DISORDER [None]
  - WEIGHT INCREASED [None]
